FAERS Safety Report 24316798 (Version 1)
Quarter: 2024Q3

REPORT INFORMATION
  Report Type: Spontaneous
  Country: NZ (occurrence: None)
  Receive Date: 20240912
  Receipt Date: 20240912
  Transmission Date: 20241017
  Serious: Yes (Other)
  Sender: Public
  Company Number: None

PATIENT
  Age: 38 Year
  Sex: Female
  Weight: 56 kg

DRUGS (1)
  1. PAXLOVID [Suspect]
     Active Substance: NIRMATRELVIR\RITONAVIR
     Indication: COVID-19

REACTIONS (5)
  - COVID-19 [None]
  - SARS-CoV-2 test positive [None]
  - SARS-CoV-2 test negative [None]
  - COVID-19 [None]
  - Body temperature decreased [None]

NARRATIVE: CASE EVENT DATE: 20240909
